FAERS Safety Report 13744025 (Version 4)
Quarter: 2018Q2

REPORT INFORMATION
  Report Type: Report from Study
  Country: DE (occurrence: DE)
  Receive Date: 20170712
  Receipt Date: 20180521
  Transmission Date: 20180711
  Serious: Yes (Hospitalization)
  Sender: FDA-Public Use
  Company Number: DE-BIOGEN-2017BI00429916

PATIENT
  Age: 42 Year
  Sex: Female

DRUGS (4)
  1. ACOXIA [Concomitant]
     Indication: INFECTION
     Route: 065
     Dates: start: 20170629
  2. BETAHISTINE [Concomitant]
     Active Substance: BETAHISTINE
     Indication: EAR DISORDER
     Route: 065
     Dates: start: 20170413, end: 20170525
  3. ZINC. [Concomitant]
     Active Substance: ZINC
     Indication: PRODUCT USED FOR UNKNOWN INDICATION
     Route: 065
     Dates: start: 20170413, end: 20170615
  4. TECFIDERA [Suspect]
     Active Substance: DIMETHYL FUMARATE
     Indication: MULTIPLE SCLEROSIS
     Dosage: MAINTENANCE DOSE
     Route: 048
     Dates: start: 20160620

REACTIONS (4)
  - Tonsillitis [Recovered/Resolved with Sequelae]
  - Middle ear effusion [Recovered/Resolved with Sequelae]
  - Tenosynovitis [Not Recovered/Not Resolved]
  - Tendonitis [Recovered/Resolved]

NARRATIVE: CASE EVENT DATE: 201703
